FAERS Safety Report 24557305 (Version 2)
Quarter: 2024Q4

REPORT INFORMATION
  Report Type: Spontaneous
  Country: US (occurrence: US)
  Receive Date: 20241028
  Receipt Date: 20241031
  Transmission Date: 20250115
  Serious: Yes (Hospitalization)
  Sender: AMGEN
  Company Number: US-AMGEN-USASP2024211703

PATIENT
  Age: 15 Year
  Sex: Female

DRUGS (2)
  1. BLINCYTO [Suspect]
     Active Substance: BLINATUMOMAB
     Indication: Philadelphia chromosome positive
     Dosage: 45 MICROGRAM, CONTINUING (CONTINOUS INTRAVENOUS (CIV))
     Route: 040
     Dates: start: 20241014, end: 20241024
  2. BLINCYTO [Suspect]
     Active Substance: BLINATUMOMAB
     Indication: B precursor type acute leukaemia
     Dosage: UNK, RESTARTED
     Route: 040
     Dates: start: 202410

REACTIONS (2)
  - Unevaluable event [Unknown]
  - Incorrect drug administration rate [Unknown]
